FAERS Safety Report 5048099-6 (Version None)
Quarter: 2006Q3

REPORT INFORMATION
  Report Type: 
  Country: None (occurrence: None)
  Receive Date: 20060711
  Receipt Date: 20060419
  Transmission Date: 20061208
  Serious: Yes (Hospitalization, Other)
  Sender: FDA-Public Use
  Company Number: PHEH2006US05196

PATIENT
  Age: 71 Year
  Sex: Male
  Weight: 111.11 kg

DRUGS (17)
  1. AREDIA [Suspect]
     Indication: MULTIPLE MYELOMA
     Dosage: 90 MG, QMO
     Dates: start: 20030109, end: 20050101
  2. ZOMETA [Suspect]
     Indication: MULTIPLE MYELOMA
     Dates: start: 20050101, end: 20051001
  3. PLAVIX [Concomitant]
     Dosage: 75 MG, QD
  4. TRICOR [Concomitant]
  5. VASOTEC [Concomitant]
     Dosage: 5 MG, BID
  6. FORTAMET [Concomitant]
  7. LIPITOR [Concomitant]
     Dosage: 10 MG, QD
  8. SYNTHROID [Concomitant]
     Dosage: 0.125 MG, QD
  9. HYDROCHLOROTHIAZIDE [Concomitant]
  10. ASPIRIN [Concomitant]
     Dosage: 81 MG, QD
  11. NEURONTIN [Concomitant]
  12. VICODIN [Concomitant]
  13. TESTOSTERONE [Concomitant]
  14. PREVACID [Concomitant]
     Dosage: UNK, QD
  15. SEREVENT [Concomitant]
     Dosage: BID, PRN
  16. FLOVENT [Concomitant]
     Dosage: 110MCG/ BID
  17. PEN-VEE K [Concomitant]
     Dosage: 500 MG, QID

REACTIONS (17)
  - ACTINOMYCOSIS [None]
  - ASTHENIA [None]
  - BLOOD GLUCOSE INCREASED [None]
  - CHILLS [None]
  - DECREASED APPETITE [None]
  - DIZZINESS [None]
  - FATIGUE [None]
  - HYPERHIDROSIS [None]
  - MALAISE [None]
  - ORAL SURGERY [None]
  - OSTEOMYELITIS [None]
  - OSTEONECROSIS [None]
  - PNEUMONIA [None]
  - PROTEINURIA [None]
  - PYREXIA [None]
  - SEPSIS [None]
  - SINUSITIS [None]
